FAERS Safety Report 4541601-X (Version None)
Quarter: 2004Q4

REPORT INFORMATION
  Report Type: 
  Country: None (occurrence: None)
  Receive Date: 20041230
  Receipt Date: 20041202
  Transmission Date: 20050328
  Serious: Yes (Hospitalization)
  Sender: FDA-Public Use
  Company Number: PHFR2004GB04465

PATIENT
  Age: 43 Year
  Sex: Male

DRUGS (3)
  1. ANTIBIOTICS [Concomitant]
     Route: 065
  2. HYOSCINE HBR HYT [Suspect]
     Route: 065
  3. CLOZARIL [Suspect]
     Indication: SCHIZOPHRENIA
     Route: 048
     Dates: start: 20030728

REACTIONS (6)
  - ABDOMINAL DISTENSION [None]
  - BLOOD PRESSURE INCREASED [None]
  - C-REACTIVE PROTEIN INCREASED [None]
  - DRUG INTERACTION [None]
  - ILEUS PARALYTIC [None]
  - VOMITING [None]
